FAERS Safety Report 13511703 (Version 2)
Quarter: 2017Q2

REPORT INFORMATION
  Report Type: Spontaneous
  Country: GB (occurrence: GB)
  Receive Date: 20170504
  Receipt Date: 20170510
  Transmission Date: 20170830
  Serious: Yes (Hospitalization, Other)
  Sender: FDA-Public Use
  Company Number: GB-MYLANLABS-2017M1026805

PATIENT

DRUGS (1)
  1. CLOZARIL [Suspect]
     Active Substance: CLOZAPINE
     Indication: SCHIZOPHRENIA
     Dosage: UNK
     Route: 048
     Dates: start: 20080408

REACTIONS (5)
  - Necrosis [Unknown]
  - Intestinal perforation [Unknown]
  - Therapy cessation [Recovering/Resolving]
  - Intestinal ischaemia [Unknown]
  - Deep vein thrombosis [Recovering/Resolving]
